FAERS Safety Report 8471186-7 (Version None)
Quarter: 2012Q2

REPORT INFORMATION
  Report Type: 
  Country: None (occurrence: None)
  Receive Date: 20120627
  Receipt Date: 20120619
  Transmission Date: 20120825
  Serious: Yes (Other)
  Sender: FDA-Public Use
  Company Number: GB-SANOFI-AVENTIS-2012SA044224

PATIENT

DRUGS (1)
  1. TAXOTERE [Suspect]
     Route: 065

REACTIONS (1)
  - HEPATIC FAILURE [None]
